FAERS Safety Report 7742801-8 (Version None)
Quarter: 2011Q3

REPORT INFORMATION
  Report Type: 
  Country: None (occurrence: None)
  Receive Date: 20110908
  Receipt Date: 20110908
  Transmission Date: 20111222
  Serious: Yes (Hospitalization, Other)
  Sender: FDA-Public Use
  Company Number: None

PATIENT
  Sex: Male
  Weight: 91.8 kg

DRUGS (4)
  1. EFUDEX [Concomitant]
  2. AVASTIN [Suspect]
     Indication: GASTRIC CANCER
     Dosage: 955 MG Q 2 WEEKS IV
     Route: 042
     Dates: start: 20110824
  3. LEUCOVORIN CALCIUM [Concomitant]
  4. OXALIPLATIN [Concomitant]

REACTIONS (2)
  - GAIT DISTURBANCE [None]
  - DEEP VEIN THROMBOSIS [None]
